FAERS Safety Report 8282823-4 (Version None)
Quarter: 2012Q2

REPORT INFORMATION
  Report Type: 
  Country: None (occurrence: None)
  Receive Date: 20120413
  Receipt Date: 20120404
  Transmission Date: 20120825
  Serious: Yes (Hospitalization, Other)
  Sender: FDA-Public Use
  Company Number: PHHY2012BR029232

PATIENT
  Sex: Female
  Weight: 48 kg

DRUGS (3)
  1. EXELON [Suspect]
     Indication: DEMENTIA ALZHEIMER'S TYPE
     Dosage: 9.6 MG, 18MG/10 CM2 1 ADHESIVE DAILY
     Route: 062
  2. EXELON [Suspect]
     Dosage: 13 MG, 27/15 CM2 1 ADHESIVE DAILY
     Route: 062
  3. CITALOPRAM HYDROBROMIDE [Concomitant]
     Indication: ANXIETY
     Dosage: 20 MG, UNK

REACTIONS (13)
  - FALL [None]
  - TREMOR [None]
  - BLOOD PRESSURE INCREASED [None]
  - WEIGHT DECREASED [None]
  - MEMORY IMPAIRMENT [None]
  - DISORIENTATION [None]
  - BLOOD POTASSIUM DECREASED [None]
  - FEMUR FRACTURE [None]
  - ARTHRALGIA [None]
  - DYSPHAGIA [None]
  - CONVULSION [None]
  - HEAD TITUBATION [None]
  - HYPERSOMNIA [None]
